FAERS Safety Report 14740673 (Version 1)
Quarter: 2018Q2

REPORT INFORMATION
  Report Type: Spontaneous
  Country: US (occurrence: US)
  Receive Date: 20180404
  Receipt Date: 20180404
  Transmission Date: 20180711
  Serious: Yes (Death)
  Sender: FDA-Public Use
  Company Number: None

PATIENT
  Age: 46 Year
  Sex: Female

DRUGS (15)
  1. RIZATRIPTAN. [Concomitant]
     Active Substance: RIZATRIPTAN
  2. ALPRAZOLAM. [Concomitant]
     Active Substance: ALPRAZOLAM
  3. TOPIRAMATE. [Concomitant]
     Active Substance: TOPIRAMATE
  4. ONDANSETRON [Concomitant]
     Active Substance: ONDANSETRON
  5. AMITRIPTYLIN [Concomitant]
     Active Substance: AMITRIPTYLINE
  6. VITAMIN D [Concomitant]
     Active Substance: CHOLECALCIFEROL
  7. BOTOX [Suspect]
     Active Substance: ONABOTULINUMTOXINA
     Indication: MIGRAINE WITH AURA
     Dosage: ?          OTHER FREQUENCY:Q12 WEEKS;?
     Route: 030
     Dates: start: 20170718
  8. XARELTO [Concomitant]
     Active Substance: RIVAROXABAN
  9. HYDROXYZ PAM [Concomitant]
     Active Substance: HYDROXYZINE PAMOATE
  10. PROCHLORPER [Concomitant]
  11. HYDROCO/APAP [Concomitant]
     Active Substance: ACETAMINOPHEN\HYDROCODONE
  12. ARIPIPRAZOLE. [Concomitant]
     Active Substance: ARIPIPRAZOLE
  13. PANTOPRAZOLE [Concomitant]
     Active Substance: PANTOPRAZOLE
  14. CLINDAMYCIN. [Concomitant]
     Active Substance: CLINDAMYCIN
  15. ESCITALOPRAM [Concomitant]
     Active Substance: ESCITALOPRAM OXALATE

REACTIONS (1)
  - Death [None]
